FAERS Safety Report 6317330-9 (Version None)
Quarter: 2009Q3

REPORT INFORMATION
  Report Type: 
  Country: None (occurrence: None)
  Receive Date: 20090821
  Receipt Date: 20090812
  Transmission Date: 20100115
  Serious: Yes (Hospitalization)
  Sender: FDA-Public Use
  Company Number: US-BIOGENIDEC-2009BI018254

PATIENT
  Age: 39 Year
  Sex: Female
  Weight: 113 kg

DRUGS (1)
  1. AVONEX [Suspect]
     Indication: MULTIPLE SCLEROSIS
     Route: 030
     Dates: start: 20060101

REACTIONS (11)
  - CEREBROVASCULAR ACCIDENT [None]
  - CONCUSSION [None]
  - CONTUSION [None]
  - INFLUENZA LIKE ILLNESS [None]
  - LIGAMENT RUPTURE [None]
  - LOSS OF CONSCIOUSNESS [None]
  - LOWER LIMB FRACTURE [None]
  - MINERAL METABOLISM DISORDER [None]
  - ROAD TRAFFIC ACCIDENT [None]
  - SKIN LACERATION [None]
  - TENDON RUPTURE [None]
